FAERS Safety Report 4488323-1 (Version None)
Quarter: 2004Q4

REPORT INFORMATION
  Report Type: 
  Country: None (occurrence: None)
  Receive Date: 20041026
  Receipt Date: 20041007
  Transmission Date: 20050328
  Serious: Yes (Other)
  Sender: FDA-Public Use
  Company Number: DSA_25202_2004

PATIENT
  Age: 44 Year
  Sex: Male

DRUGS (1)
  1. LORAZEPAM [Suspect]
     Dosage: DF

REACTIONS (14)
  - COORDINATION ABNORMAL [None]
  - DISTURBANCE IN ATTENTION [None]
  - DYSARTHRIA [None]
  - EYE REDNESS [None]
  - GAIT DISTURBANCE [None]
  - GASTRIC DISORDER [None]
  - IMPAIRED DRIVING ABILITY [None]
  - LACRIMATION INCREASED [None]
  - LOSS OF CONSCIOUSNESS [None]
  - NYSTAGMUS [None]
  - ROAD TRAFFIC ACCIDENT [None]
  - SLUGGISHNESS [None]
  - SOMNOLENCE [None]
  - VOMITING [None]
